FAERS Safety Report 4429592-3 (Version None)
Quarter: 2004Q3

REPORT INFORMATION
  Report Type: 
  Country: None (occurrence: None)
  Receive Date: 20040816
  Receipt Date: 20040806
  Transmission Date: 20050211
  Serious: Yes (Life-Threatening)
  Sender: FDA-Public Use
  Company Number: 04H-143-0270001-00

PATIENT
  Age: 30 Year
  Sex: Female

DRUGS (1)
  1. VERAPAMIL HYDROCHLORIDE [Suspect]
     Indication: TACHYCARDIA
     Dosage: 5 MG, TWICE, 5 MIN APART, INTRAVENOUS
     Route: 042

REACTIONS (7)
  - ATRIAL TACHYCARDIA [None]
  - ATRIOVENTRICULAR BLOCK [None]
  - ATRIOVENTRICULAR BLOCK SECOND DEGREE [None]
  - CIRCULATORY COLLAPSE [None]
  - DRUG EXPOSURE DURING PREGNANCY [None]
  - HYPOTENSION [None]
  - VENTRICULAR DYSFUNCTION [None]
